FAERS Safety Report 16850716 (Version 1)
Quarter: 2019Q3

REPORT INFORMATION
  Report Type: Spontaneous
  Country: US (occurrence: US)
  Receive Date: 20190925
  Receipt Date: 20190925
  Transmission Date: 20191005
  Serious: No
  Sender: FDA-Public Use
  Company Number: US-THERAPEUTICSMD-2019TMD01829

PATIENT
  Age: 72 Year
  Sex: Female
  Weight: 49.89 kg

DRUGS (3)
  1. UNSPECIFIED HEART MEDICINE [Concomitant]
  2. NATURAL HORMONE REPLACEMENT WITH COMPOUNDING PHARMACY [Concomitant]
  3. IMVEXXY [Suspect]
     Active Substance: ESTRADIOL
     Indication: VULVOVAGINAL DRYNESS
     Dosage: 10 ?G, 1X/DAY BEFORE BED
     Route: 067
     Dates: start: 20190704

REACTIONS (2)
  - Off label use [Not Recovered/Not Resolved]
  - Vaginal discharge [Recovered/Resolved]

NARRATIVE: CASE EVENT DATE: 20190704
